FAERS Safety Report 7170873-0 (Version None)
Quarter: 2010Q4

REPORT INFORMATION
  Report Type: 
  Country: None (occurrence: None)
  Receive Date: 20101206
  Receipt Date: 20101119
  Transmission Date: 20110411
  Serious: Yes (Other)
  Sender: FDA-Public Use
  Company Number: 2010EU006157

PATIENT
  Sex: Male

DRUGS (2)
  1. TACROLIMUS [Suspect]
     Indication: DERMATITIS ATOPIC
     Dosage: 0.1 %, PRN, TOPICAL
     Route: 061
     Dates: start: 20000927
  2. CORTICOSTEROIDS [Concomitant]

REACTIONS (1)
  - LYMPHADENOPATHY [None]
